FAERS Safety Report 18595320 (Version 9)
Quarter: 2022Q4

REPORT INFORMATION
  Report Type: Report from Study
  Country: RU (occurrence: None)
  Receive Date: 20201209
  Receipt Date: 20221227
  Transmission Date: 20230113
  Serious: Yes (Hospitalization)
  Sender: FDA-Public Use
  Company Number: RU-EISAI MEDICAL RESEARCH-EC-2020-084930

PATIENT
  Age: 62 Year
  Sex: Female
  Weight: 51 kg

DRUGS (7)
  1. LENVATINIB [Suspect]
     Active Substance: LENVATINIB
     Indication: Endometrial cancer
     Dosage: STARTING DOSE AT 20 MG, FLUCTUATED DOSAGE
     Route: 048
     Dates: start: 20190802, end: 20201201
  2. LENVATINIB [Suspect]
     Active Substance: LENVATINIB
     Route: 048
     Dates: start: 20201202, end: 20201210
  3. PEMBROLIZUMAB [Suspect]
     Active Substance: PEMBROLIZUMAB
     Indication: Endometrial cancer
     Route: 041
     Dates: start: 20190802, end: 20201021
  4. LISINOPRIL [Concomitant]
     Active Substance: LISINOPRIL
     Dates: start: 20200620, end: 20210220
  5. CAPTOPRIL [Concomitant]
     Active Substance: CAPTOPRIL
     Dates: start: 20200620, end: 202106
  6. LEVOTHYROXINE SODIUM [Concomitant]
     Active Substance: LEVOTHYROXINE SODIUM
     Dates: start: 20200618
  7. GLICLAZIDE [Concomitant]
     Active Substance: GLICLAZIDE
     Dates: start: 20201022, end: 20210220

REACTIONS (1)
  - Diabetic vascular disorder [Recovered/Resolved]

NARRATIVE: CASE EVENT DATE: 20201117
